FAERS Safety Report 18866304 (Version 5)
Quarter: 2021Q3

REPORT INFORMATION
  Report Type: Spontaneous
  Country: US (occurrence: US)
  Receive Date: 20210209
  Receipt Date: 20210706
  Transmission Date: 20211014
  Serious: Yes (Other)
  Sender: FDA-Public Use
  Company Number: NVSC2021US023500

PATIENT
  Age: 40 Year
  Sex: Male

DRUGS (1)
  1. KESIMPTA [Suspect]
     Active Substance: OFATUMUMAB
     Indication: RELAPSING MULTIPLE SCLEROSIS
     Dosage: 20 MG, QMO
     Route: 058
     Dates: start: 20210115

REACTIONS (8)
  - Relapsing multiple sclerosis [Not Recovered/Not Resolved]
  - Sluggishness [Recovering/Resolving]
  - Headache [Recovered/Resolved]
  - Abnormal dreams [Recovering/Resolving]
  - Fatigue [Recovering/Resolving]
  - Bradykinesia [Not Recovered/Not Resolved]
  - Skin burning sensation [Recovering/Resolving]
  - Influenza like illness [Recovering/Resolving]

NARRATIVE: CASE EVENT DATE: 20210115
